FAERS Safety Report 8903525 (Version 1)
Quarter: 2012Q4

REPORT INFORMATION
  Report Type: 
  Country: GB (occurrence: GB)
  Receive Date: 20121113
  Receipt Date: 20121113
  Transmission Date: 20130627
  Serious: Yes (Other)
  Sender: FDA-Public Use
  Company Number: GB-JNJFOC-20121105202

PATIENT
  Age: 53 Year
  Sex: Female

DRUGS (1)
  1. NICOTINE [Suspect]
     Indication: MOTOR DYSFUNCTION
     Dosage: 2 puffs
     Route: 045

REACTIONS (1)
  - Motor dysfunction [Unknown]
